FAERS Safety Report 6822363-X (Version None)
Quarter: 2010Q3

REPORT INFORMATION
  Report Type: 
  Country: None (occurrence: None)
  Receive Date: 20100708
  Receipt Date: 20100628
  Transmission Date: 20110219
  Serious: Yes (Death, Other)
  Sender: FDA-Public Use
  Company Number: PHHY2010JP42740

PATIENT
  Sex: Male

DRUGS (12)
  1. ICL670A ICL+DISTAB [Suspect]
     Indication: MYELODYSPLASTIC SYNDROME
     Dosage: 125 MG/DAY
     Route: 048
     Dates: start: 20100210, end: 20100301
  2. ICL670A ICL+DISTAB [Suspect]
     Indication: IRON OVERLOAD
  3. NEUTROGIN [Concomitant]
     Dosage: 100 UG, UNK
     Dates: start: 20100212
  4. MEROPEN [Concomitant]
     Dosage: 1.5 G, UNK
     Dates: start: 20100209, end: 20100217
  5. LEVOFLOXACIN [Concomitant]
     Dosage: 400 MG, UNK
     Route: 048
     Dates: start: 20100218, end: 20100218
  6. CIPROFLOXACIN [Concomitant]
     Dosage: 600 MG, UNK
     Dates: start: 20100218, end: 20100315
  7. FIRSTCIN [Concomitant]
     Dosage: 3 G, UNK
     Dates: start: 20100315, end: 20100326
  8. ISEPACIN [Concomitant]
     Dosage: 400 MG, UNK
     Dates: start: 20100315, end: 20100324
  9. LASIX [Concomitant]
     Dosage: 20 MG, UNK
     Dates: start: 20091206
  10. LACTULOSE [Concomitant]
     Dosage: 18 G, UNK
     Dates: start: 20091003
  11. THYRADIN [Concomitant]
     Dosage: 100 UG, UNK
     Route: 048
     Dates: start: 20060101
  12. RED BLOOD CELLS [Concomitant]
     Dosage: 2 UNITS EVERY 1-2 WEEKS

REACTIONS (5)
  - BLOOD UREA INCREASED [None]
  - CELLULITIS ORBITAL [None]
  - INFECTION [None]
  - PNEUMONIA [None]
  - VOMITING [None]
